FAERS Safety Report 9949094 (Version 2)
Quarter: 2014Q2

REPORT INFORMATION
  Report Type: Spontaneous
  Country: US (occurrence: None)
  Receive Date: 20140122
  Receipt Date: 20140421
  Transmission Date: 20141212
  Serious: Yes (Other)
  Sender: FDA-Public Use
  Company Number: AEGR000191

PATIENT
  Age: 58 Year
  Sex: Female
  Weight: 85.3 kg

DRUGS (8)
  1. JUXTAPID (LOMITAPIDE) CAPSULE, 5MG [Suspect]
     Indication: DYSLIPIDAEMIA
     Route: 048
     Dates: start: 20130913, end: 20131015
  2. JUXTAPID (LOMITAPIDE) CAPSULE, 5MG [Suspect]
     Indication: TYPE IIA HYPERLIPIDAEMIA
     Route: 048
     Dates: start: 20130913, end: 20131015
  3. CRESTOR (ROSUVASTATIN CALCIUM) [Concomitant]
  4. PLAVIX (CLOPIDOGREL BISULFATE) (CLOPIDOGREL BISULFATE) [Concomitant]
  5. ASA (ACETYLSALICYLIC ACID) [Concomitant]
  6. ZETIA (EZETIMIBE) [Concomitant]
  7. NOVOLOG MIX (INSULIN ASPART, INSULIN ASPART PROTAMINE) [Concomitant]
  8. LANTUS (INSULIN GLARGINE) [Concomitant]

REACTIONS (6)
  - Diarrhoea [None]
  - Product used for unknown indication [None]
  - Blood urea increased [None]
  - Blood glucose increased [None]
  - Blood creatinine increased [None]
  - Off label use [None]
